FAERS Safety Report 9516914 (Version 1)
Quarter: 2013Q3

REPORT INFORMATION
  Report Type: Spontaneous
  Country: US (occurrence: US)
  Receive Date: 20130911
  Receipt Date: 20130911
  Transmission Date: 20140515
  Serious: No
  Sender: FDA-Public Use
  Company Number: US-PFIZER INC-2013260212

PATIENT
  Sex: Female

DRUGS (3)
  1. LYRICA [Suspect]
     Dosage: 250 MG, 1X/DAY (100MG IN THE MORNING AND 150MG AT NIGHT)
  2. MORPHINE SULFATE [Suspect]
     Dosage: 200 MG, 1X/DAY (100MG IN THE MORNING AND 100MG AT NIGHT)
  3. OXYCODONE HYDROCHLORIDE [Suspect]
     Dosage: 30 MG (30MG UP TO SIX PER DAY)

REACTIONS (1)
  - Memory impairment [Unknown]
